FAERS Safety Report 6768871-1 (Version None)
Quarter: 2010Q2

REPORT INFORMATION
  Report Type: 
  Country: None (occurrence: None)
  Receive Date: 20100611
  Receipt Date: 20100527
  Transmission Date: 20101027
  Serious: Yes (Disabling, Other)
  Sender: FDA-Public Use
  Company Number: 2010-00413

PATIENT
  Age: 68 Year
  Sex: Female
  Weight: 86 kg

DRUGS (7)
  1. PERINDOPRIL [Suspect]
     Indication: HYPERTENSION
     Dosage: 8 MG (1 IN 1 D)
     Dates: start: 20050718, end: 20100101
  2. EZETIMIBE [Suspect]
     Indication: CARDIOVASCULAR EVENT PROPHYLAXIS
     Dosage: 10 MG (4 IN 1 D), ORAL
     Route: 048
     Dates: start: 20080130, end: 20100101
  3. CANDESARTAN CILEXETIL [Suspect]
     Indication: HYPERTENSION
     Dosage: 4 MG (4 IN 1 D), ORAL
     Route: 048
     Dates: start: 20060123, end: 20100101
  4. ASPIRIN [Concomitant]
  5. BENDROFLUMETHIAZIDE [Concomitant]
  6. THYROXINE (LEVOTHYROXINE + THYROXINE) [Concomitant]
  7. URSODIOL [Concomitant]

REACTIONS (12)
  - AGEUSIA [None]
  - ANOSMIA [None]
  - BILIARY CIRRHOSIS PRIMARY [None]
  - BULBAR PALSY [None]
  - CHEILITIS [None]
  - DRY EYE [None]
  - DYSPHAGIA [None]
  - EYE PRURITUS [None]
  - GLOSSODYNIA [None]
  - LIP SWELLING [None]
  - MOTOR NEURONE DISEASE [None]
  - SPEECH DISORDER [None]
